FAERS Safety Report 8127496-6 (Version None)
Quarter: 2012Q1

REPORT INFORMATION
  Report Type: 
  Country: None (occurrence: None)
  Receive Date: 20120210
  Receipt Date: 20120201
  Transmission Date: 20120608
  Serious: Yes (Death, Hospitalization, Other)
  Sender: FDA-Public Use
  Company Number: JP-GENZYME-THYM-1002143

PATIENT
  Sex: Male
  Weight: 22 kg

DRUGS (80)
  1. SODIUM PICOSULFATE [Concomitant]
     Indication: CONSTIPATION
     Dosage: 10 ML, QD
     Dates: start: 20090222, end: 20090222
  2. TACROLIMUS [Concomitant]
     Dosage: 1 MG, BID
     Dates: start: 20090328, end: 20090331
  3. MELPHALAN HYDROCHLORIDE [Concomitant]
     Indication: PRODUCT USED FOR UNKNOWN INDICATION
     Dosage: 60 MG, QD
     Dates: start: 20090222, end: 20090223
  4. MANGANESE CHLORIDE ZINC SULFATE COMBINED DRUG [Concomitant]
     Indication: PRODUCT USED FOR UNKNOWN INDICATION
     Dosage: 2 ML, UNK
     Dates: start: 20090224, end: 20090331
  5. HYDROCORTISONE SODIUM SUCCINATE [Concomitant]
     Indication: PRODUCT USED FOR UNKNOWN INDICATION
     Dosage: 100 MG, UNK
     Dates: start: 20090225, end: 20090225
  6. FILGRASTIM [Concomitant]
     Dosage: 300 MCG, UNK
     Dates: start: 20090328, end: 20090328
  7. FOSCARNET SODIUM [Concomitant]
     Indication: PRODUCT USED FOR UNKNOWN INDICATION
     Dosage: 7.68 MG, UNK
     Dates: start: 20090311, end: 20090331
  8. TOTAL BODY IRRADIATION [Concomitant]
     Indication: CHRONIC GRANULOMATOUS DISEASE
     Dosage: UNK
     Route: 065
     Dates: start: 20090217, end: 20090218
  9. MEQUITAZINE [Concomitant]
     Indication: PRODUCT USED FOR UNKNOWN INDICATION
     Dosage: 3 MG, BID
     Dates: start: 20090216, end: 20090331
  10. CLARITHROMYCIN [Concomitant]
     Dosage: 80 MG, TID
     Dates: start: 20090223, end: 20090223
  11. CANDESARTAN CILEXETIL [Concomitant]
     Dosage: 4 MG, QD
     Dates: start: 20090331, end: 20090331
  12. TACROLIMUS [Concomitant]
     Indication: PRODUCT USED FOR UNKNOWN INDICATION
     Dosage: UNK
     Dates: start: 20090306, end: 20090306
  13. CEFOZOPRAN HYDROCHLORIDE [Concomitant]
     Indication: INFECTION PROPHYLAXIS
     Dosage: UNK
     Route: 065
     Dates: start: 20090217, end: 20090310
  14. MENATETRENONE [Concomitant]
     Indication: PRODUCT USED FOR UNKNOWN INDICATION
     Dosage: 10 MG, UNK
     Dates: start: 20090224, end: 20090225
  15. MENATETRENONE [Concomitant]
     Dosage: 10 MG, UNK
     Dates: start: 20090303, end: 20090304
  16. MENATETRENONE [Concomitant]
     Dosage: 10 MG, UNK
     Dates: start: 20090309, end: 20090311
  17. FILGRASTIM [Concomitant]
     Indication: PRODUCT USED FOR UNKNOWN INDICATION
     Dosage: 300 MCG, UNK
     Dates: start: 20090302, end: 20090323
  18. FREEZE-DRIED ION EXCHANGE RESI [Concomitant]
     Indication: PRODUCT USED FOR UNKNOWN INDICATION
     Dosage: 2.5 MG, QD
     Dates: start: 20090331, end: 20090331
  19. THYMOGLOBULIN [Suspect]
     Indication: BONE MARROW CONDITIONING REGIMEN
     Dosage: 50 MG, QD
     Route: 042
     Dates: start: 20090220, end: 20090223
  20. VORICONAZOLE [Concomitant]
     Indication: INFECTION PROPHYLAXIS
     Dosage: 50 MG, BID
     Route: 065
     Dates: start: 20090210, end: 20090525
  21. URSODIOL [Concomitant]
     Indication: PROPHYLAXIS
     Dosage: 100 MG, BID
     Dates: start: 20090218, end: 20090331
  22. FLURBIPROFEN [Concomitant]
     Dosage: UNK
     Dates: start: 20090325, end: 20090325
  23. CANDESARTAN CILEXETIL [Concomitant]
     Indication: PRODUCT USED FOR UNKNOWN INDICATION
     Dosage: 4 MG, QD
     Dates: start: 20090225, end: 20090331
  24. HEPARIN [Concomitant]
     Dosage: UNK
     Dates: start: 20090310, end: 20090310
  25. PROCATEROL HCL [Concomitant]
     Indication: PRODUCT USED FOR UNKNOWN INDICATION
     Dosage: 0.3 ML, BID
     Dates: start: 20090318, end: 20090324
  26. HEPARIN [Concomitant]
     Indication: PROPHYLAXIS
     Dosage: UNK
     Dates: start: 20090218, end: 20090331
  27. CHLORPHENIRAMINE MALEATE [Concomitant]
     Dosage: UNK
     Dates: start: 20090318, end: 20090318
  28. MENATETRENONE [Concomitant]
     Dosage: 10 MG, UNK
     Dates: start: 20090323, end: 20090324
  29. METHOTREXATE [Concomitant]
     Indication: PROPHYLAXIS AGAINST GRAFT VERSUS HOST DISEASE
     Dosage: 13 MG, UNK
     Dates: start: 20090226, end: 20090226
  30. MEROPENEM [Concomitant]
     Indication: PRODUCT USED FOR UNKNOWN INDICATION
     Dosage: UNK
     Dates: start: 20090311, end: 20090323
  31. MINOCYCLINE HYDROCHLORIDE [Concomitant]
     Indication: PRODUCT USED FOR UNKNOWN INDICATION
     Dosage: UNK
     Dates: start: 20090317, end: 20090323
  32. ITRACONAZOLE [Concomitant]
     Indication: INFECTION PROPHYLAXIS
     Dosage: UNK
     Route: 065
     Dates: start: 20090208, end: 20090212
  33. SULFAMETHOPRIM [Concomitant]
     Indication: PRODUCT USED FOR UNKNOWN INDICATION
     Dosage: UNK
     Dates: start: 20090216, end: 20090217
  34. AMBROXOL HYDROCHLORIDE [Concomitant]
     Indication: PRODUCT USED FOR UNKNOWN INDICATION
     Dosage: 15 MG, BID
     Dates: start: 20090216, end: 20090331
  35. FLURBIPROFEN [Concomitant]
     Indication: PRODUCT USED FOR UNKNOWN INDICATION
     Dosage: UNK
     Dates: start: 20090220, end: 20090220
  36. SODIUM PICOSULFATE [Concomitant]
     Dosage: 10 ML, QD
     Dates: start: 20090305, end: 20090305
  37. GLYCERIN [Concomitant]
     Indication: CONSTIPATION
     Dosage: 40 ML, QD
     Dates: start: 20090222, end: 20090224
  38. HEPARIN [Concomitant]
     Dosage: UNK
     Dates: start: 20090313, end: 20090313
  39. FAMOTIDINE [Concomitant]
     Dosage: 10 MG, UNK
     Dates: start: 20090228, end: 20090323
  40. PREDNISOLONE [Concomitant]
     Indication: PRODUCT USED FOR UNKNOWN INDICATION
     Dosage: 15 MG, TID
     Dates: start: 20090325, end: 20090330
  41. FLUDARABINE PHOSPHATE [Concomitant]
     Indication: CHRONIC GRANULOMATOUS DISEASE
     Dosage: 26 MG, UNK
     Route: 065
     Dates: start: 20090218, end: 20090223
  42. HAPTOGLOBINS [Concomitant]
     Indication: PRODUCT USED FOR UNKNOWN INDICATION
     Dosage: 2000 U, UNK
     Dates: start: 20090225, end: 20090225
  43. HYDROCORTISONE SODIUM SUCCINATE [Concomitant]
     Dosage: 100 MG, UNK
     Dates: start: 20090306, end: 20090306
  44. METHOTREXATE [Concomitant]
     Dosage: 8.5 MG, UNK
     Dates: start: 20090308, end: 20090308
  45. PREDNISOLONE SODIUM SUCCINATE INJ [Concomitant]
     Indication: PRODUCT USED FOR UNKNOWN INDICATION
     Dosage: 10 MG, UNK
     Dates: start: 20090312, end: 20090317
  46. TACROLIMUS [Concomitant]
     Dosage: 0.5 MG, BID
     Dates: start: 20090330, end: 20090331
  47. TACROLIMUS [Concomitant]
     Dosage: 60 MG, QD
     Dates: start: 20090224, end: 20090327
  48. KETOPROFEN [Concomitant]
     Indication: PRODUCT USED FOR UNKNOWN INDICATION
     Dosage: UNK
     Dates: start: 20090314, end: 20090314
  49. LOPERAMIDE HCL [Concomitant]
     Indication: PRODUCT USED FOR UNKNOWN INDICATION
     Dosage: UNK
     Dates: start: 20090320, end: 20090322
  50. FAMOTIDINE [Concomitant]
     Indication: PRODUCT USED FOR UNKNOWN INDICATION
     Dosage: UNK
     Dates: start: 20090324, end: 20090331
  51. CHLORPHENIRAMINE MALEATE [Concomitant]
     Dosage: 0.5 ML, UNK
     Dates: start: 20090308, end: 20090308
  52. CHLORPHENIRAMINE MALEATE [Concomitant]
     Dosage: 0.5 ML, UNK
     Dates: start: 20090311, end: 20090311
  53. CHLORPHENIRAMINE MALEATE [Concomitant]
     Dosage: 0.5 ML, UNK
     Dates: start: 20090314, end: 20090314
  54. CHLORPHENIRAMINE MALEATE [Concomitant]
     Dosage: 0.5 ML, UNK
     Dates: start: 20090322, end: 20090322
  55. RAMOSETRON HYDROCHLORIDE [Concomitant]
     Indication: PRODUCT USED FOR UNKNOWN INDICATION
     Dosage: 0.3 MG, UNK
     Dates: start: 20090220, end: 20090220
  56. MIDAZOLAM [Concomitant]
     Indication: PRODUCT USED FOR UNKNOWN INDICATION
     Dosage: 3 ML, QD
     Dates: start: 20090216, end: 20090216
  57. BETAMETHASON [Concomitant]
     Indication: PRODUCT USED FOR UNKNOWN INDICATION
     Dosage: UNK
     Dates: start: 20090306, end: 20090306
  58. CHLORPHENIRAMINE MALEATE [Concomitant]
     Dosage: 1.5 ML, QD
     Dates: start: 20090305, end: 20090306
  59. CHLORPHENIRAMINE MALEATE [Concomitant]
     Dosage: 0.5 ML, UNK
     Dates: start: 20090316, end: 20090316
  60. TEICOPLANIN [Concomitant]
     Indication: INFECTION PROPHYLAXIS
     Dosage: 100 MG, UNK
     Route: 065
     Dates: start: 20090220, end: 20090317
  61. ACYCLOVIR [Concomitant]
     Indication: INFECTION PROPHYLAXIS
     Dosage: 250 MG, QD
     Dates: start: 20090224, end: 20090311
  62. IMMUNOGLOBULIN HUMAN NORMAL [Concomitant]
     Dosage: 2.5 MG, UNK
     Dates: start: 20090305, end: 20090305
  63. POLYMYXIN B SULFATE [Concomitant]
     Indication: PRODUCT USED FOR UNKNOWN INDICATION
     Dosage: UNK
     Dates: start: 20090216, end: 20090324
  64. CLARITHROMYCIN [Concomitant]
     Indication: PRODUCT USED FOR UNKNOWN INDICATION
     Dosage: 80 MG, TID
     Dates: start: 20090216, end: 20090221
  65. TACROLIMUS [Concomitant]
     Dosage: UNK
     Dates: start: 20090313, end: 20090313
  66. PREDNISOLONE [Concomitant]
     Dosage: 25 MG, TID
     Dates: start: 20090330, end: 20090331
  67. GRANISETRON HYDROCHLORIDE [Concomitant]
     Indication: PRODUCT USED FOR UNKNOWN INDICATION
     Dosage: 3 MG, BID
     Dates: start: 20090218, end: 20090225
  68. METHYLPREDNISOLONE SODIUM SUCCINATE [Concomitant]
     Indication: PREMEDICATION
     Dosage: 20 MG, QD
     Dates: start: 20090220, end: 20090224
  69. CHLORPHENIRAMINE MALEATE [Concomitant]
     Indication: PREMEDICATION
     Dosage: 1 ML, QD
     Dates: start: 20090220, end: 20090225
  70. CHLORPHENIRAMINE MALEATE [Concomitant]
     Dosage: 0.5 ML, UNK
     Dates: start: 20090320, end: 20090320
  71. MENATETRENONE [Concomitant]
     Dosage: 10 MG, UNK
     Dates: start: 20090316, end: 20090318
  72. METHOTREXATE [Concomitant]
     Dosage: 8.5 MG, UNK
     Dates: start: 20090228, end: 20090228
  73. METHOTREXATE [Concomitant]
     Dosage: 8.5 MG, UNK
     Dates: start: 20090303, end: 20090303
  74. METOCLOPRAMIDE [Concomitant]
     Indication: PRODUCT USED FOR UNKNOWN INDICATION
     Dosage: 5 MG, UNK
     Dates: start: 20090227, end: 20090227
  75. IMMUNOGLOBULIN HUMAN NORMAL [Concomitant]
     Indication: PRODUCT USED FOR UNKNOWN INDICATION
     Dosage: 2.5 MG, UNK
     Dates: start: 20090312, end: 20090312
  76. PREDNISOLONE SODIUM SUCCINATE INJ [Concomitant]
     Dosage: UNK
     Dates: start: 20090317, end: 20090324
  77. HEPARIN [Concomitant]
     Indication: PRODUCT USED FOR UNKNOWN INDICATION
     Dosage: UNK
     Dates: start: 20090305, end: 20090305
  78. MONTELUKAST [Concomitant]
     Indication: PRODUCT USED FOR UNKNOWN INDICATION
     Dosage: 5 MG, QD
     Dates: start: 20090318, end: 20090331
  79. BUDESONIDE [Concomitant]
     Indication: PRODUCT USED FOR UNKNOWN INDICATION
     Dosage: 0.25 MG, BID
     Dates: start: 20090318, end: 20090324
  80. MIXED AMINO ACID CARBOHYDRATE ELECTROLYTE VITAMIN COMBINED DRUG [Concomitant]
     Indication: PRODUCT USED FOR UNKNOWN INDICATION
     Dosage: 1103 ML, UNK
     Dates: start: 20090225, end: 20090331

REACTIONS (4)
  - ACUTE RESPIRATORY DISTRESS SYNDROME [None]
  - ACUTE GRAFT VERSUS HOST DISEASE IN SKIN [None]
  - CYTOMEGALOVIRUS TEST POSITIVE [None]
  - POST TRANSPLANT LYMPHOPROLIFERATIVE DISORDER [None]
